FAERS Safety Report 8093826 (Version 11)
Quarter: 2012Q4

REPORT INFORMATION
  Report Type: Report from Study
  Country: DE (occurrence: DE)
  Receive Date: 20110817
  Receipt Date: 20121130
  Transmission Date: 20130627
  Serious: Yes (Hospitalization, Other)
  Sender: FDA-Public Use
  Company Number: DE-PFIZER INC-2011186040

PATIENT
  Age: 67 Year
  Sex: Female
  Weight: 70 kg

DRUGS (15)
  1. PLACEBO [Suspect]
     Indication: STEMI
     Dosage: UNK
     Route: 048
     Dates: start: 20110802, end: 20110802
  2. PLACEBO [Concomitant]
     Dosage: UNK
     Route: 048
     Dates: start: 20110803, end: 20110811
  3. PANTOZOL [Suspect]
     Indication: REFLUX ESOPHAGITIS
     Dosage: 40 mg, 1x/day
     Route: 048
     Dates: start: 20110802, end: 20110808
  4. CONCOR [Concomitant]
     Indication: HYPERTENSION
     Dosage: 2.5 mg, 1x/day
     Route: 048
     Dates: start: 20110811
  5. CLEXANE [Concomitant]
     Indication: PROPHYLAXIS
     Dosage: 4000 IU, 1x/day
     Route: 058
     Dates: start: 20110803, end: 20110812
  6. ENOXAPARIN [Concomitant]
     Indication: PROPHYLAXIS
     Dosage: 4000 IU, 1x/day
     Route: 058
     Dates: start: 20110803
  7. CALCIGEN D [Concomitant]
     Indication: OSTEOPOROSIS
     Dosage: 600 mg, 1x/day
     Route: 048
     Dates: start: 2008
  8. VOTUM [Concomitant]
     Indication: HYPERTENSION
     Dosage: 80 mg, 1x/day
     Route: 048
     Dates: start: 20110806
  9. VOTUM [Concomitant]
     Dosage: 20 mg, 1x/day
     Route: 048
     Dates: start: 20110825
  10. SIMVASTATIN [Concomitant]
     Indication: HYPERCHOLESTEREMIA
     Dosage: 40 mg, 1x/day
     Route: 048
     Dates: start: 20110802
  11. ASS [Concomitant]
     Indication: PROPHYLAXIS
     Dosage: 100 mg, 1x/day
     Route: 048
     Dates: start: 20110802
  12. BRILIQUE [Concomitant]
     Indication: PROPHYLAXIS
     Dosage: 90 mg, 2x/day
     Route: 048
     Dates: start: 20110803
  13. HEPARIN [Concomitant]
     Indication: PROPHYLAXIS
     Dosage: 500 mg, 4x/day
     Route: 042
     Dates: start: 20110802, end: 20110803
  14. REKAWAN [Concomitant]
     Indication: POTASSIUM DEFICIENCY
     Dosage: 8.05 mmol, 2x/day
     Route: 048
     Dates: end: 20110805
  15. MAGNESIUM VERLA [Concomitant]
     Indication: MAGNESIUM DEFICIENCY
     Dosage: 5 mmol, 2x/day
     Route: 048
     Dates: start: 20110805

REACTIONS (1)
  - Long QT syndrome [Recovered/Resolved]
